FAERS Safety Report 9952251 (Version 7)
Quarter: 2014Q4

REPORT INFORMATION
  Report Type: Report from Study
  Country: JP (occurrence: JP)
  Receive Date: 20140304
  Receipt Date: 20141017
  Transmission Date: 20150529
  Serious: Yes (Death, Hospitalization)
  Sender: FDA-Public Use
  Company Number: JP-JNJFOC-20130300688

PATIENT
  Age: 77 Year
  Sex: Male

DRUGS (14)
  1. ANTEBATE [Concomitant]
     Active Substance: BETAMETHASONE DIPROPIONATE
     Indication: PSORIASIS
     Route: 062
  2. ANTEBATE [Concomitant]
     Active Substance: BETAMETHASONE DIPROPIONATE
     Indication: PSORIASIS
     Route: 061
  3. STELARA [Suspect]
     Active Substance: USTEKINUMAB
     Indication: PSORIASIS
     Route: 058
     Dates: start: 20130523, end: 20130523
  4. METHOTREXATE [Concomitant]
     Active Substance: METHOTREXATE
     Indication: PSORIASIS
     Route: 048
     Dates: start: 20120627, end: 20120714
  5. BONALFA [Concomitant]
     Indication: PSORIASIS
     Route: 061
  6. TIGASON [Concomitant]
     Active Substance: ETRETINATE
     Indication: PSORIASIS
     Route: 048
     Dates: start: 20120627
  7. FOLIAMIN [Concomitant]
     Active Substance: FOLIC ACID
     Indication: PSORIASIS
     Route: 048
     Dates: start: 20120627
  8. STELARA [Suspect]
     Active Substance: USTEKINUMAB
     Indication: PSORIASIS
     Route: 058
     Dates: start: 20130626, end: 20130626
  9. STELARA [Suspect]
     Active Substance: USTEKINUMAB
     Indication: PSORIASIS
     Route: 058
     Dates: start: 20130919, end: 20130919
  10. BONALFA [Concomitant]
     Indication: PSORIASIS
     Route: 061
  11. STELARA [Suspect]
     Active Substance: USTEKINUMAB
     Indication: PSORIASIS
     Route: 058
     Dates: start: 20121004, end: 20121004
  12. HEPARINOID [Concomitant]
     Active Substance: CHONDROITIN SULFATE (BOVINE)
     Indication: PSORIASIS
     Route: 062
  13. TIGASON [Concomitant]
     Active Substance: ETRETINATE
     Indication: PSORIASIS
     Route: 048
     Dates: start: 20120108, end: 20120626
  14. METHOTREXATE [Concomitant]
     Active Substance: METHOTREXATE
     Indication: PSORIASIS
     Route: 048
     Dates: start: 20120715

REACTIONS (2)
  - HTLV-1 test positive [Not Recovered/Not Resolved]
  - Adenocarcinoma of colon [Fatal]

NARRATIVE: CASE EVENT DATE: 20121101
